FAERS Safety Report 12549383 (Version 1)
Quarter: 2016Q3

REPORT INFORMATION
  Report Type: Spontaneous
  Country: GB (occurrence: GB)
  Receive Date: 20160712
  Receipt Date: 20160712
  Transmission Date: 20161109
  Serious: Yes (Hospitalization, Other)
  Sender: FDA-Public Use
  Company Number: GB-MEDA-2016060115

PATIENT
  Age: 32 Year
  Sex: Male

DRUGS (3)
  1. OXYMETHOLONE [Suspect]
     Active Substance: OXYMETHOLONE
  2. TURINABOL [Suspect]
     Active Substance: NANDROLONE DECANOATE
     Route: 048
  3. TESTOSTERONE ENANTHATE. [Suspect]
     Active Substance: TESTOSTERONE ENANTHATE

REACTIONS (4)
  - Intentional product misuse [Recovered/Resolved]
  - Cerebellar infarction [Unknown]
  - Deafness neurosensory [Not Recovered/Not Resolved]
  - Polycythaemia [Recovered/Resolved]
